FAERS Safety Report 8763100 (Version 2)
Quarter: 2012Q4

REPORT INFORMATION
  Report Type: 
  Country: CA (occurrence: CA)
  Receive Date: 20120831
  Receipt Date: 20120920
  Transmission Date: 20130627
  Serious: Yes (Hospitalization)
  Sender: FDA-Public Use
  Company Number: CA-AMGEN-CANSP2012047287

PATIENT
  Age: 84 Year
  Sex: Female
  Weight: 53.52 kg

DRUGS (6)
  1. PROLIA [Suspect]
     Indication: OSTEOPOROSIS
     Dosage: 60 mg, one time dose
     Route: 058
     Dates: start: 20120227
  2. PROLIA [Suspect]
     Dosage: UNK
     Dates: start: 20120827
  3. ATACAND [Concomitant]
     Indication: HYPERTENSION
     Dosage: 16 mg, qd
     Route: 048
  4. ZOPLICONE [Concomitant]
     Indication: INSOMNIA
     Dosage: 5 mg, qhs
     Route: 048
  5. SYNTHROID [Concomitant]
     Indication: HYPOTHYROIDISM
     Dosage: 100 mug, UNK
     Route: 048
  6. VAGIFEM [Concomitant]
     Indication: ATROPHIC VULVOVAGINITIS
     Dosage: 10 mug, 3 times/wk
     Route: 048

REACTIONS (2)
  - Fall [Unknown]
  - Femur fracture [Not Recovered/Not Resolved]
